FAERS Safety Report 4405895-3 (Version None)
Quarter: 2004Q3

REPORT INFORMATION
  Report Type: 
  Country: None (occurrence: None)
  Receive Date: 20040723
  Receipt Date: 20040202
  Transmission Date: 20050211
  Serious: No
  Sender: FDA-Public Use
  Company Number: US-GLAXOSMITHKLINE-A0496073A

PATIENT
  Age: 72 Year
  Sex: Female

DRUGS (4)
  1. AVANDIA [Suspect]
     Dosage: 8MG PER DAY
     Route: 048
     Dates: end: 20040101
  2. THYROID MEDICATION [Concomitant]
  3. HYDRODIURIL [Concomitant]
  4. MULTIVITAMIN [Concomitant]

REACTIONS (1)
  - WEIGHT [None]
